FAERS Safety Report 8131463-6 (Version None)
Quarter: 2012Q1

REPORT INFORMATION
  Report Type: 
  Country: None (occurrence: None)
  Receive Date: 20120207
  Receipt Date: 20120130
  Transmission Date: 20120608
  Serious: Yes (Life-Threatening, Hospitalization, Other)
  Sender: FDA-Public Use
  Company Number: AUR-APL-2012-00527

PATIENT
  Age: 44 Year
  Sex: Male

DRUGS (15)
  1. ALDOSTERONE INHIBITOR (ALDOSTERONE ANTAGONIST) [Concomitant]
  2. SPIRONOLACTONE [Suspect]
     Indication: PRODUCT USED FOR UNKNOWN INDICATION
  3. ASPIRIN [Concomitant]
  4. VERAPAMIL HYDROCHLORIDE [Suspect]
     Indication: PRODUCT USED FOR UNKNOWN INDICATION
  5. BLINDED THERAPY [Suspect]
     Indication: TYPE 2 DIABETES MELLITUS
     Dates: start: 20110202, end: 20110517
  6. LANTUS [Suspect]
     Indication: DIABETES MELLITUS
     Dosage: 40 IU
  7. ANTI-COAGULANT (ANTICOAGULANT SODIUM CITRATE) [Concomitant]
  8. BETA BLOCKER (BETA BLOCKING AGENTS) [Concomitant]
  9. SAXAGLIPTIN (SAXAGLIPTIN) [Suspect]
     Indication: TYPE 2 DIABETES MELLITUS
     Dates: start: 20110202, end: 20110517
  10. DIOVAN [Suspect]
     Indication: PRODUCT USED FOR UNKNOWN INDICATION
  11. ANGIOTENSIN CONVERTING ENZYME [Concomitant]
  12. METOPROLOL TARTRATE [Suspect]
     Indication: PRODUCT USED FOR UNKNOWN INDICATION
  13. EZETIMIBE [Concomitant]
  14. DIURETICS (DIURETICS) [Concomitant]
  15. LASIX [Suspect]
     Indication: PRODUCT USED FOR UNKNOWN INDICATION

REACTIONS (5)
  - HYPOXIA [None]
  - BRADYCARDIA [None]
  - HYPERKALAEMIA [None]
  - RENAL FAILURE ACUTE [None]
  - EJECTION FRACTION DECREASED [None]
